FAERS Safety Report 23263386 (Version 8)
Quarter: 2024Q1

REPORT INFORMATION
  Report Type: Report from Study
  Country: CN (occurrence: CN)
  Receive Date: 20231205
  Receipt Date: 20240125
  Transmission Date: 20240410
  Serious: Yes (Death, Life-Threatening, Other)
  Sender: FDA-Public Use
  Company Number: CN-BAXTER-2023BAX037232

PATIENT
  Age: 52 Year
  Sex: Male
  Weight: 55 kg

DRUGS (20)
  1. CYCLOPHOSPHAMIDE [Suspect]
     Active Substance: CYCLOPHOSPHAMIDE
     Indication: Peripheral T-cell lymphoma unspecified
     Dosage: 1335 MG, ONCE DAILY
     Route: 041
     Dates: start: 20230830, end: 20230830
  2. CYCLOPHOSPHAMIDE [Suspect]
     Active Substance: CYCLOPHOSPHAMIDE
     Dosage: 1335 MG, ONCE DAILY
     Route: 041
     Dates: start: 20230921, end: 20230921
  3. CYCLOPHOSPHAMIDE [Suspect]
     Active Substance: CYCLOPHOSPHAMIDE
     Dosage: 1335 MG, ONCE DAILY
     Route: 041
     Dates: start: 20231012, end: 20231012
  4. CYCLOPHOSPHAMIDE [Suspect]
     Active Substance: CYCLOPHOSPHAMIDE
     Dosage: 1335 MG, ONCE DAILY
     Route: 041
     Dates: start: 20231102, end: 20231102
  5. GOLIDOCITINIB [Suspect]
     Active Substance: GOLIDOCITINIB
     Indication: Peripheral T-cell lymphoma unspecified
     Dosage: 75 MG, ONCE DAILY
     Route: 048
     Dates: start: 20230830, end: 20230910
  6. GOLIDOCITINIB [Suspect]
     Active Substance: GOLIDOCITINIB
     Dosage: 75 MG, ONCE DAILY
     Route: 048
     Dates: start: 20230913, end: 20230918
  7. GOLIDOCITINIB [Suspect]
     Active Substance: GOLIDOCITINIB
     Dosage: 75 MG, ONCE DAILY
     Route: 048
     Dates: start: 20230920, end: 20231121
  8. DOXORUBICIN [Suspect]
     Active Substance: DOXORUBICIN
     Indication: Peripheral T-cell lymphoma unspecified
     Dosage: 89 MG, ONCE DAILY
     Route: 041
     Dates: start: 20230830, end: 20230830
  9. DOXORUBICIN [Suspect]
     Active Substance: DOXORUBICIN
     Dosage: 89 MG, ONCE DAILY
     Route: 041
     Dates: start: 20230921, end: 20230921
  10. DOXORUBICIN [Suspect]
     Active Substance: DOXORUBICIN
     Dosage: 89 MG, ONCE DAILY
     Route: 041
     Dates: start: 20231012, end: 20231012
  11. DOXORUBICIN [Suspect]
     Active Substance: DOXORUBICIN
     Dosage: 89 MG, ONCE DAILY
     Route: 041
     Dates: start: 20231102, end: 20231112
  12. VINCRISTINE [Suspect]
     Active Substance: VINCRISTINE
     Indication: Peripheral T-cell lymphoma unspecified
     Dosage: 2 MG, ONCE DAILY
     Route: 041
     Dates: start: 20230830, end: 20230830
  13. VINCRISTINE [Suspect]
     Active Substance: VINCRISTINE
     Dosage: 2 MG, ONCE DAILY
     Route: 041
     Dates: start: 20230921, end: 20230921
  14. VINCRISTINE [Suspect]
     Active Substance: VINCRISTINE
     Dosage: 2 MG, ONCE DAILY
     Route: 041
     Dates: start: 20231012, end: 20231012
  15. VINCRISTINE [Suspect]
     Active Substance: VINCRISTINE
     Dosage: 2 MG, ONCE DAILY
     Route: 041
     Dates: start: 20231102, end: 20231102
  16. PREDNISONE [Suspect]
     Active Substance: PREDNISONE
     Indication: Peripheral T-cell lymphoma unspecified
     Dosage: 100 MG, ONCE DAILY
     Route: 048
     Dates: start: 20230830, end: 20230903
  17. PREDNISONE [Suspect]
     Active Substance: PREDNISONE
     Dosage: 100 MG, ONCE DAILY
     Route: 048
     Dates: start: 20230921, end: 20230925
  18. PREDNISONE [Suspect]
     Active Substance: PREDNISONE
     Dosage: 100 MG, ONCE DAILY
     Route: 048
     Dates: start: 20231012, end: 20231016
  19. PREDNISONE [Suspect]
     Active Substance: PREDNISONE
     Dosage: 100 MG, ONCE DAILY
     Route: 048
     Dates: start: 20231102, end: 20231106
  20. AZACITIDINE [Suspect]
     Active Substance: AZACITIDINE
     Indication: Neoplasm
     Dosage: 100 MG, QD
     Route: 058
     Dates: start: 20231219, end: 20231225

REACTIONS (2)
  - Death [Fatal]
  - Haemophagocytic lymphohistiocytosis [Not Recovered/Not Resolved]

NARRATIVE: CASE EVENT DATE: 20231128
